FAERS Safety Report 24257926 (Version 1)
Quarter: 2024Q3

REPORT INFORMATION
  Report Type: Spontaneous
  Country: CN (occurrence: CN)
  Receive Date: 20240828
  Receipt Date: 20240828
  Transmission Date: 20241016
  Serious: Yes (Hospitalization)
  Sender: PAREXEL
  Company Number: CN-SHANGHAI JUNSHI BIOSCIENCES CO., LTD.-CN2024011105

PATIENT

DRUGS (3)
  1. TORIPALIMAB [Suspect]
     Active Substance: TORIPALIMAB
     Indication: Ureteric cancer
     Dosage: 240 MG (D1)
     Route: 041
     Dates: start: 20240625, end: 20240704
  2. GEMCITABINE HYDROCHLORIDE [Suspect]
     Active Substance: GEMCITABINE HYDROCHLORIDE
     Indication: Ureteric cancer
     Dosage: 1400 MG (D1, D8)
     Route: 041
     Dates: start: 20240625, end: 20240704
  3. CISPLATIN [Suspect]
     Active Substance: CISPLATIN
     Indication: Ureteric cancer
     Dosage: 120 MG (D2)
     Route: 041
     Dates: start: 20240625, end: 20240626

REACTIONS (1)
  - Myelosuppression [Recovering/Resolving]

NARRATIVE: CASE EVENT DATE: 20240708
